FAERS Safety Report 7678099-9 (Version None)
Quarter: 2011Q3

REPORT INFORMATION
  Report Type: 
  Country: None (occurrence: None)
  Receive Date: 20110811
  Receipt Date: 20110801
  Transmission Date: 20111222
  Serious: Yes (Hospitalization)
  Sender: FDA-Public Use
  Company Number: US-JNJFOC-20090602366

PATIENT
  Sex: Female
  Weight: 53.1 kg

DRUGS (2)
  1. INFLIXIMAB [Suspect]
     Route: 042
     Dates: start: 20080911
  2. INFLIXIMAB [Suspect]
     Indication: INFLAMMATORY BOWEL DISEASE
     Dosage: TOTAL 7 DOSES
     Route: 042
     Dates: start: 20090519

REACTIONS (1)
  - SMALL INTESTINAL PERFORATION [None]
